FAERS Safety Report 8537391-6 (Version None)
Quarter: 2012Q3

REPORT INFORMATION
  Report Type: 
  Country: None (occurrence: None)
  Receive Date: 20120725
  Receipt Date: 20120719
  Transmission Date: 20120928
  Serious: Yes (Other)
  Sender: FDA-Public Use
  Company Number: FR-PFIZER INC-2012113778

PATIENT
  Age: 69 Year
  Sex: Female
  Weight: 63 kg

DRUGS (5)
  1. AROMASIN [Suspect]
     Indication: BREAST CANCER IN SITU
     Dosage: 1 DF, 1X/DAY
     Dates: start: 20120315, end: 20120403
  2. ALDACTONE [Concomitant]
     Dosage: 75 MG, 1X/DAY
     Dates: start: 20021001
  3. CRESTOR [Concomitant]
     Indication: HYPERCHOLESTEROLAEMIA
     Dosage: 10 DF, 1X/DAY
     Route: 048
     Dates: start: 20080915
  4. ASPIRIN [Concomitant]
     Dosage: 75 DF, 1X/DAY
     Route: 048
     Dates: start: 20021001
  5. FLUDEX - SLOW RELEASE [Concomitant]
     Indication: HYPERTENSION
     Dosage: 1.5 DF, 1X/DAY
     Dates: start: 20021001

REACTIONS (2)
  - TENOSYNOVITIS STENOSANS [None]
  - TENDON DISORDER [None]
